FAERS Safety Report 5592260-9 (Version None)
Quarter: 2008Q1

REPORT INFORMATION
  Report Type: 
  Country: None (occurrence: None)
  Receive Date: 20080115
  Receipt Date: 20080109
  Transmission Date: 20080703
  Serious: Yes (Hospitalization)
  Sender: FDA-Public Use
  Company Number: BR-BOEHRINGER INGELHEIM PHARMACEUTICALS, INC.-2007-BP-06505BP

PATIENT
  Sex: Female
  Weight: 62 kg

DRUGS (7)
  1. MICARDIS [Suspect]
     Indication: CARDIOVASCULAR DISORDER
     Dates: start: 20030422
  2. MICARDIS [Suspect]
     Indication: CEREBROVASCULAR ACCIDENT PROPHYLAXIS
  3. AMLODIPINE [Concomitant]
  4. FUROSEMIDE [Concomitant]
  5. PROPRANOLOL [Concomitant]
  6. SIMVASTATIN [Concomitant]
  7. LEVOTIROXINA [Concomitant]

REACTIONS (1)
  - RENAL FAILURE CHRONIC [None]
